FAERS Safety Report 10528374 (Version 3)
Quarter: 2014Q4

REPORT INFORMATION
  Report Type: Report from Study
  Country: CA (occurrence: CA)
  Receive Date: 20141020
  Receipt Date: 20141113
  Transmission Date: 20150528
  Serious: Yes (Death, Hospitalization)
  Sender: FDA-Public Use
  Company Number: CA-009507513-1410CAN009076

PATIENT
  Sex: Female

DRUGS (1)
  1. POSANOL [Suspect]
     Active Substance: POSACONAZOLE
     Indication: ZYGOMYCOSIS
     Dosage: 300 MG, QD
     Route: 042
     Dates: start: 20140922, end: 20141017

REACTIONS (2)
  - Malaise [Fatal]
  - Therapy cessation [Fatal]
